FAERS Safety Report 15461555 (Version 1)
Quarter: 2018Q4

REPORT INFORMATION
  Report Type: Report from Study
  Country: US (occurrence: US)
  Receive Date: 20181003
  Receipt Date: 20181003
  Transmission Date: 20190204
  Serious: Yes (Hospitalization)
  Sender: FDA-Public Use
  Company Number: US-SEATTLE GENETICS-2018SGN01909

PATIENT
  Sex: Female

DRUGS (1)
  1. BRENTUXIMAB VEDOTIN [Suspect]
     Active Substance: BRENTUXIMAB VEDOTIN
     Indication: PRODUCT USED FOR UNKNOWN INDICATION
     Route: 065

REACTIONS (12)
  - Feeling jittery [Unknown]
  - White blood cell count decreased [Unknown]
  - Sinusitis [Unknown]
  - Unevaluable event [Unknown]
  - Nasal congestion [Unknown]
  - Lymphadenopathy [Unknown]
  - Sleep disorder [Unknown]
  - Malaise [Unknown]
  - Feeling abnormal [Unknown]
  - Pyrexia [Unknown]
  - Photosensitivity reaction [Unknown]
  - Limb discomfort [Unknown]
